FAERS Safety Report 5051870-8 (Version None)
Quarter: 2006Q3

REPORT INFORMATION
  Report Type: 
  Country: None (occurrence: None)
  Receive Date: 20060713
  Receipt Date: 20060713
  Transmission Date: 20061208
  Serious: Yes (Hospitalization)
  Sender: FDA-Public Use
  Company Number: None

PATIENT
  Age: 92 Year
  Sex: Male

DRUGS (2)
  1. VANCOMYCIN [Suspect]
     Indication: PLEURAL EFFUSION
     Dosage: 1 G IV Q 12 H
     Route: 042
  2. MOXIFLOXACIN HCL [Suspect]
     Indication: PLEURAL EFFUSION
     Dosage: 400 MG IV QD
     Route: 042

REACTIONS (1)
  - CLOSTRIDIUM DIFFICILE COLITIS [None]
